FAERS Safety Report 26215921 (Version 1)
Quarter: 2025Q4

REPORT INFORMATION
  Report Type: Spontaneous
  Country: CN (occurrence: CN)
  Receive Date: 20251231
  Receipt Date: 20251231
  Transmission Date: 20260117
  Serious: Yes (Hospitalization)
  Sender: BEIGENE
  Company Number: CN-BEONEMEDICINES-BGN-2025-024035

PATIENT
  Age: 67 Year
  Sex: Male
  Weight: 60 kg

DRUGS (8)
  1. TISLELIZUMAB [Suspect]
     Active Substance: TISLELIZUMAB
     Indication: Colon cancer
     Dosage: 200 MILLIGRAM
     Dates: start: 20251110, end: 20251204
  2. TISLELIZUMAB [Suspect]
     Active Substance: TISLELIZUMAB
     Dosage: 200 MILLIGRAM
     Route: 041
     Dates: start: 20251110, end: 20251204
  3. TISLELIZUMAB [Suspect]
     Active Substance: TISLELIZUMAB
     Dosage: 200 MILLIGRAM
     Route: 041
     Dates: start: 20251110, end: 20251204
  4. TISLELIZUMAB [Suspect]
     Active Substance: TISLELIZUMAB
     Dosage: 200 MILLIGRAM
     Dates: start: 20251110, end: 20251204
  5. SODIUM CHLORIDE [Concomitant]
     Active Substance: SODIUM CHLORIDE
     Indication: Vehicle solution use
     Dosage: 100 MILLILITER
     Dates: start: 20251110, end: 20251110
  6. SODIUM CHLORIDE [Concomitant]
     Active Substance: SODIUM CHLORIDE
     Dosage: 100 MILLILITER
     Route: 041
     Dates: start: 20251110, end: 20251110
  7. SODIUM CHLORIDE [Concomitant]
     Active Substance: SODIUM CHLORIDE
     Dosage: 100 MILLILITER
     Route: 041
     Dates: start: 20251110, end: 20251110
  8. SODIUM CHLORIDE [Concomitant]
     Active Substance: SODIUM CHLORIDE
     Dosage: 100 MILLILITER
     Dates: start: 20251110, end: 20251110

REACTIONS (2)
  - Immune-mediated arthritis [Recovering/Resolving]
  - Pain of skin [Recovering/Resolving]

NARRATIVE: CASE EVENT DATE: 20251204
